FAERS Safety Report 25565606 (Version 1)
Quarter: 2025Q3

REPORT INFORMATION
  Report Type: Spontaneous
  Country: US (occurrence: US)
  Receive Date: 20250716
  Receipt Date: 20250716
  Transmission Date: 20251020
  Serious: Yes (Hospitalization, Other)
  Sender: NOVO NORDISK
  Company Number: US-NOVOPROD-1335631

PATIENT
  Age: 56 Year
  Sex: Male
  Weight: 90.718 kg

DRUGS (8)
  1. OZEMPIC [Suspect]
     Active Substance: SEMAGLUTIDE
     Indication: Type 2 diabetes mellitus
     Dosage: 05 MG, QW
     Dates: start: 20210426, end: 20210601
  2. OZEMPIC [Suspect]
     Active Substance: SEMAGLUTIDE
     Dosage: 05 MG, QW
     Dates: start: 202108, end: 202108
  3. METFORMIN [Concomitant]
     Active Substance: METFORMIN HYDROCHLORIDE
     Indication: Type 2 diabetes mellitus
     Dates: start: 20160101
  4. CELECOXIB [Concomitant]
     Active Substance: CELECOXIB
     Indication: Depression
     Dates: start: 20060101
  5. CELECOXIB [Concomitant]
     Active Substance: CELECOXIB
     Indication: Anxiety
  6. LIPITOR [Concomitant]
     Active Substance: ATORVASTATIN CALCIUM
     Indication: Blood cholesterol increased
     Dates: start: 20210101
  7. ALLOPURINOL [Concomitant]
     Active Substance: ALLOPURINOL
     Indication: Gout
     Dates: start: 20210101
  8. PROBIOTICS NOS [Concomitant]
     Active Substance: PROBIOTICS NOS
     Indication: Ill-defined disorder
     Dates: start: 20210801

REACTIONS (4)
  - Cholecystitis [Recovered/Resolved]
  - Decreased appetite [Recovered/Resolved]
  - Diarrhoea [Recovered/Resolved]
  - Off label use [Unknown]

NARRATIVE: CASE EVENT DATE: 20210426
